FAERS Safety Report 24360436 (Version 2)
Quarter: 2025Q2

REPORT INFORMATION
  Report Type: Spontaneous
  Country: PT (occurrence: PT)
  Receive Date: 20240925
  Receipt Date: 20250506
  Transmission Date: 20250716
  Serious: Yes (Death, Hospitalization, Other)
  Sender: AUROBINDO
  Company Number: PT-AMGEN-PRTSP2020020202

PATIENT
  Age: 62 Year
  Sex: Female

DRUGS (2)
  1. CINACALCET [Suspect]
     Active Substance: CINACALCET
     Indication: End stage renal disease
     Route: 065
  2. WARFARIN [Concomitant]
     Active Substance: WARFARIN
     Indication: Product used for unknown indication
     Route: 065

REACTIONS (3)
  - Calciphylaxis [Fatal]
  - Infected skin ulcer [Fatal]
  - Cerebrovascular accident [Fatal]
